FAERS Safety Report 20218088 (Version 1)
Quarter: 2021Q4

REPORT INFORMATION
  Report Type: Spontaneous
  Country: US (occurrence: US)
  Receive Date: 20211222
  Receipt Date: 20211222
  Transmission Date: 20220303
  Serious: No
  Sender: FDA-Public Use
  Company Number: US-SANOFI-00891969

PATIENT
  Sex: Female

DRUGS (2)
  1. TOUJEO [Suspect]
     Active Substance: INSULIN GLARGINE
     Indication: Diabetes mellitus
     Dosage: 7 UNITS IN AM (MORNING ); 8 UNITS IN PM (AFTERNOON OR EVENING ), BID
  2. TOUJEO [Suspect]
     Active Substance: INSULIN GLARGINE
     Dosage: 4 UNITS OUT OF THE PEN

REACTIONS (1)
  - Inappropriate schedule of product administration [Unknown]
